FAERS Safety Report 6631839-X (Version None)
Quarter: 2010Q1

REPORT INFORMATION
  Report Type: 
  Country: None (occurrence: None)
  Receive Date: 20100312
  Receipt Date: 20100309
  Transmission Date: 20100710
  Serious: Yes (Hospitalization)
  Sender: FDA-Public Use
  Company Number: BR-ROCHE-667640

PATIENT
  Sex: Female
  Weight: 70 kg

DRUGS (7)
  1. BLINDED TOCILIZUMAB [Suspect]
     Indication: RHEUMATOID ARTHRITIS
     Route: 042
     Dates: start: 20061207
  2. METOTREXATO [Concomitant]
     Dosage: TDD:125 MG/WEEK
     Dates: start: 20060101
  3. ACIDO FOLICO [Concomitant]
     Dosage: TDD:5MG/WEEK
     Dates: start: 20060101
  4. PARACETAMOL [Concomitant]
     Dates: start: 20061207
  5. ENALAPRIL MALEATE [Concomitant]
     Dates: start: 20000101
  6. OMEPRAZOL [Concomitant]
     Dates: start: 20080814
  7. METFORMIN HYDROCHLORIDE [Concomitant]
     Dosage: DRUG: GLIFAG XR
     Dates: start: 20090915

REACTIONS (1)
  - TRANSIENT ISCHAEMIC ATTACK [None]
